FAERS Safety Report 7672136-3 (Version None)
Quarter: 2011Q3

REPORT INFORMATION
  Report Type: 
  Country: None (occurrence: None)
  Receive Date: 20110809
  Receipt Date: 20110804
  Transmission Date: 20111222
  Serious: Yes (Other)
  Sender: FDA-Public Use
  Company Number: FR-PFIZER INC-2011178235

PATIENT
  Age: 44 Year
  Sex: Female

DRUGS (3)
  1. SOLU-MEDROL [Suspect]
     Indication: MULTIPLE SCLEROSIS
     Dosage: 1 G, 1X/DAY
     Route: 040
     Dates: start: 20100909, end: 20100911
  2. SOTALOL HCL [Concomitant]
     Indication: HYPERTENSION
     Dosage: UNK
     Route: 048
     Dates: start: 19830101
  3. AVONEX [Concomitant]
     Indication: MULTIPLE SCLEROSIS
     Dosage: 1 DF, WEEKLY
     Route: 030
     Dates: start: 20030101

REACTIONS (1)
  - PHLEBITIS [None]
